FAERS Safety Report 7414819-6 (Version None)
Quarter: 2011Q2

REPORT INFORMATION
  Report Type: 
  Country: None (occurrence: None)
  Receive Date: 20110406
  Receipt Date: 20110328
  Transmission Date: 20111010
  Serious: Yes (Death)
  Sender: FDA-Public Use
  Company Number: 2011030140

PATIENT
  Age: 58 Year
  Sex: Female

DRUGS (4)
  1. ONSOLIS [Suspect]
     Indication: BREAKTHROUGH PAIN
     Dosage: TO BE TITRATED UP TO 4-200 MCG FILMS (UP TO 4 TIMES DAILY, BU
     Route: 002
     Dates: start: 20100812, end: 20110215
  2. EXALGO (HYDROMORPHONE HCL) [Concomitant]
  3. DILAUDID [Concomitant]
  4. ONSOLIS [Suspect]
     Indication: BREAKTHROUGH PAIN
     Dosage: 1200 MCG, UP TO 4 TIMES DAILY, BU
     Route: 002
     Dates: start: 20110216, end: 20110325

REACTIONS (2)
  - BREAST CANCER STAGE IV [None]
  - DISEASE PROGRESSION [None]
